FAERS Safety Report 9126509 (Version 2)
Quarter: 2013Q1

REPORT INFORMATION
  Report Type: Report from Study
  Country: PL (occurrence: PL)
  Receive Date: 20130228
  Receipt Date: 20130308
  Transmission Date: 20140127
  Serious: Yes (Hospitalization)
  Sender: FDA-Public Use
  Company Number: PL-009507513-1302POL011844

PATIENT
  Age: 36 Year
  Sex: Male
  Weight: 74 kg

DRUGS (3)
  1. BOCEPREVIR [Suspect]
     Indication: CHRONIC HEPATITIS C
     Dosage: 4 DF, QM
     Route: 048
     Dates: start: 20121116
  2. RIBAVIRIN [Suspect]
     Indication: CHRONIC HEPATITIS C
     Dosage: 2 DF IN THE MORNING AND 3 DF IN THE EVENING
     Route: 048
     Dates: start: 20121019
  3. PEGINTERFERON ALFA-2A [Suspect]
     Indication: CHRONIC HEPATITIS C
     Dosage: 180 MICROGRAM, UNK
     Route: 058
     Dates: start: 20121019

REACTIONS (1)
  - Upper respiratory tract inflammation [Recovered/Resolved]
